FAERS Safety Report 24716506 (Version 2)
Quarter: 2024Q4

REPORT INFORMATION
  Report Type: Spontaneous
  Country: JP (occurrence: JP)
  Receive Date: 20241210
  Receipt Date: 20241211
  Transmission Date: 20250114
  Serious: Yes (Death, Life-Threatening, Other)
  Sender: ASTELLAS
  Company Number: JP-PFIZER INC-PV202400158961

PATIENT

DRUGS (1)
  1. ENFORTUMAB VEDOTIN [Suspect]
     Active Substance: ENFORTUMAB VEDOTIN
     Indication: Transitional cell carcinoma
     Dosage: 1.25 MG/KG, KG, ON DAYS 1, 8, AND 15, OF A 28-DAY CYCLE, 4 CYCLES
     Route: 065

REACTIONS (4)
  - Interstitial lung disease [Fatal]
  - Thrombocytopenia [Unknown]
  - Myelodysplastic syndrome [Unknown]
  - Second primary malignancy [Unknown]
